FAERS Safety Report 12344600 (Version 2)
Quarter: 2016Q2

REPORT INFORMATION
  Report Type: Spontaneous
  Country: US (occurrence: US)
  Receive Date: 20160507
  Receipt Date: 20160620
  Transmission Date: 20160815
  Serious: Yes (Life-Threatening, Hospitalization, Other)
  Sender: FDA-Public Use
  Company Number: US-JNJFOC-20160328970

PATIENT
  Age: 44 Year
  Sex: Male

DRUGS (4)
  1. PERCOCET [Suspect]
     Active Substance: ACETAMINOPHEN\OXYCODONE HYDROCHLORIDE
     Indication: BACK PAIN
     Dosage: ACETAMINOPHEN AND OXYCODONE 10/325
     Route: 065
     Dates: start: 201508
  2. XARELTO [Suspect]
     Active Substance: RIVAROXABAN
     Indication: FACTOR V LEIDEN MUTATION
     Dosage: 15 MG TWICE A DAY FOR 20 DAYS, THEN UP TO 20 MG ON THE 21ST DAY.
     Route: 048
     Dates: start: 20150730, end: 201508
  3. HYDROCODONE [Concomitant]
     Active Substance: HYDROCODONE
     Indication: BACK INJURY
     Route: 065
  4. XARELTO [Suspect]
     Active Substance: RIVAROXABAN
     Indication: DEEP VEIN THROMBOSIS
     Dosage: 15 MG TWICE A DAY FOR 20 DAYS, THEN UP TO 20 MG ON THE 21ST DAY.
     Route: 048
     Dates: start: 20150730, end: 201508

REACTIONS (7)
  - Mallory-Weiss syndrome [Unknown]
  - Upper gastrointestinal haemorrhage [Recovering/Resolving]
  - Hypovolaemic shock [Recovered/Resolved]
  - Back injury [Unknown]
  - Depression [Unknown]
  - Nausea [Recovered/Resolved]
  - Anxiety [Unknown]

NARRATIVE: CASE EVENT DATE: 2015
